FAERS Safety Report 6299135-0 (Version None)
Quarter: 2009Q3

REPORT INFORMATION
  Report Type: 
  Country: None (occurrence: None)
  Receive Date: 20090803
  Receipt Date: 20090728
  Transmission Date: 20100115
  Serious: Yes (Life-Threatening, Hospitalization, Other)
  Sender: FDA-Public Use
  Company Number: PAR_02947_2009

PATIENT
  Sex: Female

DRUGS (1)
  1. MEGACE ES [Suspect]
     Indication: WEIGHT DECREASED
     Dosage: 625 MG/5 ML ORAL
     Route: 048
     Dates: start: 20090127

REACTIONS (2)
  - DIABETES MELLITUS [None]
  - RENAL FAILURE [None]
